FAERS Safety Report 6180508-1 (Version None)
Quarter: 2009Q2

REPORT INFORMATION
  Report Type: 
  Country: None (occurrence: None)
  Receive Date: 20090504
  Receipt Date: 20090504
  Transmission Date: 20091009
  Serious: No
  Sender: FDA-Public Use
  Company Number: None

PATIENT
  Age: 30 Year
  Sex: Female
  Weight: 67.1324 kg

DRUGS (2)
  1. CYMBALTA [Suspect]
     Indication: ANXIETY
     Dosage: 60 MG TWICE PER DAY PO
     Route: 048
     Dates: start: 20081007, end: 20090422
  2. CYMBALTA [Suspect]
     Indication: DEPRESSION
     Dosage: 60 MG TWICE PER DAY PO
     Route: 048
     Dates: start: 20081007, end: 20090422

REACTIONS (17)
  - ABDOMINAL PAIN [None]
  - ANXIETY [None]
  - ARTHRALGIA [None]
  - CONDITION AGGRAVATED [None]
  - DEPRESSION [None]
  - DIARRHOEA [None]
  - DIZZINESS [None]
  - FEELING ABNORMAL [None]
  - HANGOVER [None]
  - HYPERPHAGIA [None]
  - MALAISE [None]
  - NAUSEA [None]
  - PAIN [None]
  - PANIC ATTACK [None]
  - PARAESTHESIA [None]
  - VOMITING [None]
  - WEIGHT INCREASED [None]
